FAERS Safety Report 7582461-2 (Version None)
Quarter: 2011Q2

REPORT INFORMATION
  Report Type: 
  Country: None (occurrence: None)
  Receive Date: 20110623
  Receipt Date: 20110610
  Transmission Date: 20111010
  Serious: Yes (Hospitalization, Other)
  Sender: FDA-Public Use
  Company Number: 1000021035

PATIENT
  Age: 87 Year
  Sex: Male

DRUGS (17)
  1. FUROSEMIDE [Suspect]
     Dosage: 20 MG (20 MG, 1 IN 1 D); 40 MG ONCE;
     Dates: start: 20100721, end: 20110512
  2. FUROSEMIDE [Suspect]
     Dosage: 20 MG (20 MG, 1 IN 1 D); 40 MG ONCE;
     Dates: start: 20110513, end: 20110513
  3. PANTOPRAZOLE SODIUM [Suspect]
     Dosage: 40 MG (40 MG, ONCE); 80 MG ONCE;
     Dates: start: 20110513, end: 20110513
  4. PANTOPRAZOLE SODIUM [Suspect]
     Dosage: 40 MG (40 MG, ONCE); 80 MG ONCE;
     Dates: start: 20100712, end: 20110512
  5. FOSINOPRIL (TABLETS) [Concomitant]
  6. REMINYL (GALANTAMINE) (TABLETS) [Suspect]
     Dosage: 24 MG, (24 MG, 1 IN 1 D), ORAL; 48 MG, ONCE, ORAL;
     Route: 048
     Dates: start: 20110513, end: 20110513
  7. REMINYL (GALANTAMINE) (TABLETS) [Suspect]
     Dosage: 24 MG, (24 MG, 1 IN 1 D), ORAL; 48 MG, ONCE, ORAL;
     Route: 048
     Dates: start: 20101201, end: 20110512
  8. ATENOLOL [Concomitant]
  9. CARBASALATE CALCIUM (TABLETS) [Concomitant]
  10. SYMBICORT (BUDESONIDE, FORMOTEROL FUMARATE) (TABLETS) [Concomitant]
  11. SPIRIVA (TIOTROPIM BROMIDE (TABLETS) [Concomitant]
  12. ASCAL CARDIO (CARBASALATE CALCIUM) (TABLETS) [Suspect]
     Dosage: 100 MG (100 MG, 1 IN 1 D); 200 MG ONCE,
     Dates: start: 20110513, end: 20110513
  13. ASCAL CARDIO (CARBASALATE CALCIUM) (TABLETS) [Suspect]
     Dosage: 100 MG (100 MG, 1 IN 1 D); 200 MG ONCE,
     Dates: start: 20100721, end: 20110512
  14. SIMVASTATIN [Suspect]
     Dosage: 40 MG (40 MG, 1 IN 1 D); 80 MG ONCE
     Dates: start: 20110513, end: 20110513
  15. SIMVASTATIN [Suspect]
     Dosage: 40 MG (40 MG, 1 IN 1 D); 80 MG ONCE
     Dates: start: 20040113, end: 20110512
  16. MEMANTINE HYDROCHLORIDE [Suspect]
     Indication: DEMENTIA ALZHEIMER'S TYPE
     Dosage: 20 MG (20 MG, 1 IN 1 D), ORAL; 40 MG, ONCE, ORAL
     Route: 048
     Dates: start: 20110415, end: 20110512
  17. MEMANTINE HYDROCHLORIDE [Suspect]
     Indication: DEMENTIA ALZHEIMER'S TYPE
     Dosage: 20 MG (20 MG, 1 IN 1 D), ORAL; 40 MG, ONCE, ORAL
     Route: 048
     Dates: start: 20110513, end: 20110513

REACTIONS (4)
  - ACCIDENTAL OVERDOSE [None]
  - ARRHYTHMIA [None]
  - CONFUSIONAL STATE [None]
  - SOMNOLENCE [None]
